FAERS Safety Report 5431099-1 (Version None)
Quarter: 2007Q3

REPORT INFORMATION
  Report Type: 
  Country: None (occurrence: None)
  Receive Date: 20070830
  Receipt Date: 20070212
  Transmission Date: 20080115
  Serious: No
  Sender: FDA-Public Use
  Company Number: A0639504A

PATIENT

DRUGS (2)
  1. BUPROPION HYDROCHLORIDE [Suspect]
     Indication: DRUG USE FOR UNKNOWN INDICATION
     Route: 048
     Dates: start: 20070101
  2. WELLBUTRIN XL [Suspect]
     Indication: DRUG USE FOR UNKNOWN INDICATION
     Route: 048

REACTIONS (3)
  - ANXIETY [None]
  - HEADACHE [None]
  - INCREASED APPETITE [None]
